FAERS Safety Report 10261428 (Version 1)
Quarter: 2014Q2

REPORT INFORMATION
  Report Type: Spontaneous
  Country: US (occurrence: US)
  Receive Date: 20140626
  Receipt Date: 20140626
  Transmission Date: 20141212
  Serious: No
  Sender: FDA-Public Use
  Company Number: US-BAYER-2014-094374

PATIENT
  Age: 29 Year
  Sex: Female

DRUGS (1)
  1. MIRENA [Suspect]
     Indication: CONTRACEPTION
     Dosage: 20 MCG/24HR, CONT
     Route: 015
     Dates: start: 20101125

REACTIONS (13)
  - Amenorrhoea [None]
  - Pain [None]
  - Abdominal pain lower [None]
  - Nausea [None]
  - Feeling abnormal [None]
  - Pain [None]
  - Alopecia [None]
  - Pain [None]
  - Acne [None]
  - Breast tenderness [None]
  - Back pain [None]
  - Feeling abnormal [None]
  - Abdominal pain [None]
